FAERS Safety Report 7521528-1 (Version None)
Quarter: 2011Q2

REPORT INFORMATION
  Report Type: 
  Country: None (occurrence: None)
  Receive Date: 20110603
  Receipt Date: 20110524
  Transmission Date: 20111010
  Serious: No
  Sender: FDA-Public Use
  Company Number: US-BAYER-2011-045238

PATIENT
  Age: 23 Year
  Sex: Female

DRUGS (1)
  1. MIRENA [Suspect]
     Indication: CONTRACEPTION
     Dosage: UNK
     Route: 015
     Dates: start: 20101019, end: 20110520

REACTIONS (4)
  - DEVICE DISLOCATION [None]
  - ABDOMINAL DISTENSION [None]
  - PREGNANCY WITH CONTRACEPTIVE DEVICE [None]
  - AMENORRHOEA [None]
